FAERS Safety Report 24903008 (Version 1)
Quarter: 2025Q1

REPORT INFORMATION
  Report Type: Spontaneous
  Country: GB (occurrence: GB)
  Receive Date: 20250130
  Receipt Date: 20250130
  Transmission Date: 20250409
  Serious: Yes (Hospitalization, Other)
  Sender: ORGANON
  Company Number: None

PATIENT
  Age: 74 Year
  Sex: Male
  Weight: 74 kg

DRUGS (1)
  1. ALENDRONATE SODIUM [Suspect]
     Active Substance: ALENDRONATE SODIUM
     Indication: Osteoporotic fracture
     Dosage: ONCE A WEEK
     Dates: start: 20220101, end: 20250112

REACTIONS (2)
  - Osteonecrosis [Not Recovered/Not Resolved]
  - Medication error [Unknown]

NARRATIVE: CASE EVENT DATE: 20241212
